FAERS Safety Report 5735418-8 (Version None)
Quarter: 2008Q2

REPORT INFORMATION
  Report Type: 
  Country: None (occurrence: None)
  Receive Date: 20080508
  Receipt Date: 20080508
  Transmission Date: 20081010
  Serious: No
  Sender: FDA-Public Use
  Company Number: None

PATIENT
  Age: 24 Year
  Sex: Female
  Weight: 56.246 kg

DRUGS (3)
  1. CREST PRO HEALTH MOUTHWASH CREST [Suspect]
     Indication: GINGIVITIS
     Dosage: 10 ML 2XDAY PO
     Route: 048
     Dates: start: 20080115, end: 20080122
  2. CREST PRO HEALTH MOUTHWASH CREST [Suspect]
     Indication: PROPHYLAXIS
     Dosage: 10 ML 2XDAY PO
     Route: 048
     Dates: start: 20080115, end: 20080122
  3. CREST PRO HEALTH MOUTHWASH CREST [Suspect]
     Indication: TOOTH DEPOSIT
     Dosage: 10 ML 2XDAY PO
     Route: 048
     Dates: start: 20080115, end: 20080122

REACTIONS (1)
  - AGEUSIA [None]
